FAERS Safety Report 10843973 (Version 39)
Quarter: 2020Q2

REPORT INFORMATION
  Report Type: Report from Study
  Country: CA (occurrence: CA)
  Receive Date: 20150220
  Receipt Date: 20200610
  Transmission Date: 20200713
  Serious: Yes (Hospitalization, Other)
  Sender: FDA-Public Use
  Company Number: PHHY2014CA086339

PATIENT
  Age: 53 Year
  Sex: Male

DRUGS (7)
  1. INFLECTRA [Concomitant]
     Active Substance: INFLIXIMAB-DYYB
     Indication: PRODUCT USED FOR UNKNOWN INDICATION
     Dosage: UNK
     Route: 065
     Dates: start: 20200604
  2. SANDOSTATIN [Suspect]
     Active Substance: OCTREOTIDE ACETATE
     Indication: SHORT-BOWEL SYNDROME
     Dosage: 100 UG, TID
     Route: 058
     Dates: start: 201405
  3. SANDOSTATIN LAR DEPOT [Suspect]
     Active Substance: OCTREOTIDE ACETATE
     Indication: SHORT-BOWEL SYNDROME
     Dosage: 20 MG, QMO (ONCE A MONTH)
     Route: 030
     Dates: start: 20140710
  4. SEPTRA [Concomitant]
     Active Substance: SULFAMETHOXAZOLE\TRIMETHOPRIM
     Indication: PRODUCT USED FOR UNKNOWN INDICATION
     Route: 065
  5. INFLUENZA VACCINE [Concomitant]
     Active Substance: INFLUENZA VIRUS VACCINE
     Indication: PRODUCT USED FOR UNKNOWN INDICATION
     Dosage: UNK
     Route: 065
     Dates: start: 20191104
  6. LOSARTAN. [Concomitant]
     Active Substance: LOSARTAN
     Indication: HYPERTENSION
     Dosage: 25 MG, QD
     Route: 048
     Dates: start: 20190524
  7. LASIX [Concomitant]
     Active Substance: FUROSEMIDE
     Indication: OEDEMA
     Dosage: 20 MG, BID
     Route: 048
     Dates: start: 20190524

REACTIONS (64)
  - Abdominal pain [Recovering/Resolving]
  - Short-bowel syndrome [Unknown]
  - Induration [Recovering/Resolving]
  - Rhinorrhoea [Unknown]
  - Injection site bruising [Unknown]
  - Injection site haemorrhage [Recovered/Resolved]
  - Stoma site abscess [Unknown]
  - Diarrhoea [Not Recovered/Not Resolved]
  - Anaemia [Unknown]
  - Pain in extremity [Unknown]
  - Oedema peripheral [Not Recovered/Not Resolved]
  - Stoma site oedema [Unknown]
  - Nasopharyngitis [Unknown]
  - Headache [Unknown]
  - Back pain [Unknown]
  - Crohn^s disease [Unknown]
  - Cellulitis [Recovering/Resolving]
  - Inguinal hernia [Unknown]
  - International normalised ratio decreased [Unknown]
  - Abscess jaw [Unknown]
  - Chills [Unknown]
  - Visual impairment [Unknown]
  - Drug intolerance [Unknown]
  - Nausea [Recovering/Resolving]
  - Disease recurrence [Unknown]
  - Abscess [Unknown]
  - Erythema [Recovering/Resolving]
  - Arthralgia [Unknown]
  - Oropharyngeal pain [Unknown]
  - Pain [Recovered/Resolved]
  - Abdominal pain upper [Recovering/Resolving]
  - Heart rate decreased [Unknown]
  - Dehydration [Unknown]
  - Product use in unapproved indication [Unknown]
  - Stoma site pain [Unknown]
  - Malaise [Unknown]
  - Blood pressure increased [Unknown]
  - Pyrexia [Not Recovered/Not Resolved]
  - Body temperature decreased [Unknown]
  - Dizziness [Unknown]
  - Blood pressure decreased [Unknown]
  - Vomiting [Unknown]
  - Blood pressure systolic increased [Unknown]
  - Weight decreased [Not Recovered/Not Resolved]
  - CD4 lymphocytes decreased [Unknown]
  - Musculoskeletal pain [Unknown]
  - Renal function test abnormal [Unknown]
  - Fatigue [Unknown]
  - Injection site pain [Unknown]
  - Burning sensation [Unknown]
  - Fall [Unknown]
  - Intestinal obstruction [Unknown]
  - Gastric disorder [Unknown]
  - Wound [Unknown]
  - Prothrombin level abnormal [Recovering/Resolving]
  - Myalgia [Unknown]
  - Nausea [Recovered/Resolved]
  - Decreased appetite [Recovering/Resolving]
  - Infection [Unknown]
  - Haemorrhage [Unknown]
  - Joint injury [Unknown]
  - Pain [Unknown]
  - Headache [Recovered/Resolved]
  - Asthenia [Recovering/Resolving]

NARRATIVE: CASE EVENT DATE: 20140710
